FAERS Safety Report 25259374 (Version 1)
Quarter: 2025Q2

REPORT INFORMATION
  Report Type: Spontaneous
  Country: CN (occurrence: CN)
  Receive Date: 20250501
  Receipt Date: 20250501
  Transmission Date: 20250717
  Serious: Yes (Other)
  Sender: BAXTER
  Company Number: None

PATIENT
  Age: 54 Year
  Sex: Female
  Weight: 68 kg

DRUGS (4)
  1. CYCLOPHOSPHAMIDE [Suspect]
     Active Substance: CYCLOPHOSPHAMIDE
     Indication: Breast cancer female
     Dosage: 0.950000 G (950MG), QD, (FIRST CHEMOTHERAPY WITH EC REGIMEN) WITH SODIUM CHLORIDE INJECTION 100ML
     Route: 041
     Dates: start: 20250416, end: 20250416
  2. EPIRUBICIN [Suspect]
     Active Substance: EPIRUBICIN
     Indication: Breast cancer female
     Dosage: 155.0000 MG, QD, (FIRST CHEMOTHERAPY WITH EC REGIMEN) WITH SODIUM CHLORIDE INJECTION 100ML
     Route: 041
     Dates: start: 20250416, end: 20250416
  3. SODIUM CHLORIDE [Suspect]
     Active Substance: SODIUM CHLORIDE
     Indication: Breast cancer female
     Dosage: 100.0000 ML, QD WITH CYCLOPHOSPHAMIDE 950MG
     Route: 041
     Dates: start: 20250416, end: 20250416
  4. SODIUM CHLORIDE [Suspect]
     Active Substance: SODIUM CHLORIDE
     Dosage: 100.0000 ML, QD WITH EPIRUBICIN 155MG
     Route: 041
     Dates: start: 20250416, end: 20250416

REACTIONS (4)
  - Decreased appetite [Recovering/Resolving]
  - Nausea [Recovering/Resolving]
  - Vomiting [Recovering/Resolving]
  - Gastrointestinal disorder [Unknown]

NARRATIVE: CASE EVENT DATE: 20250416
